FAERS Safety Report 7513189-2 (Version None)
Quarter: 2011Q2

REPORT INFORMATION
  Report Type: 
  Country: None (occurrence: None)
  Receive Date: 20110531
  Receipt Date: 20110524
  Transmission Date: 20111010
  Serious: Yes (Other)
  Sender: FDA-Public Use
  Company Number: DE-AMGEN-DEUSP2011019962

PATIENT
  Age: 65 Year
  Sex: Female
  Weight: 85 kg

DRUGS (6)
  1. VERAPAMIL [Concomitant]
     Indication: RENAL FAILURE
     Dosage: UNK
     Route: 048
     Dates: start: 20010101
  2. DEKRISTOL [Concomitant]
     Indication: RENAL FAILURE
     Dosage: UNK
     Dates: start: 20030822
  3. MIRCERA [Concomitant]
     Indication: RENAL FAILURE
     Dosage: UNK
     Dates: start: 20081028
  4. PROLIA [Suspect]
     Indication: OSTEOPOROSIS POSTMENOPAUSAL
     Dosage: UNK
     Route: 058
     Dates: start: 20110101
  5. ALFACALCIDOL [Concomitant]
     Indication: RENAL FAILURE
     Dosage: UNK
     Route: 048
     Dates: start: 20000821
  6. TORSEMIDE [Concomitant]
     Indication: RENAL FAILURE
     Dosage: UNK
     Route: 048
     Dates: start: 20050906

REACTIONS (3)
  - BLOOD PARATHYROID HORMONE INCREASED [None]
  - TETANY [None]
  - BLOOD CALCIUM DECREASED [None]
